FAERS Safety Report 4790379-3 (Version None)
Quarter: 2005Q4

REPORT INFORMATION
  Report Type: 
  Country: None (occurrence: None)
  Receive Date: 20051005
  Receipt Date: 20050927
  Transmission Date: 20060501
  Serious: Yes (Other)
  Sender: FDA-Public Use
  Company Number: 2005134800

PATIENT
  Age: 81 Year
  Sex: Female
  Weight: 61.2356 kg

DRUGS (4)
  1. LIPITOR [Suspect]
     Indication: BLOOD CHOLESTEROL INCREASED
     Dosage: 10 MG (10 MG, 1 IN 1 D), ORAL
     Route: 048
     Dates: start: 20030701, end: 20050101
  2. NORVASC [Concomitant]
  3. MULTIVITAMIN [Concomitant]
  4. CALCIUM(CALCIUM) [Concomitant]

REACTIONS (5)
  - ABASIA [None]
  - CEREBROVASCULAR ACCIDENT [None]
  - FALL [None]
  - HYPOAESTHESIA [None]
  - PARAESTHESIA [None]
